FAERS Safety Report 4436224-7 (Version None)
Quarter: 2004Q3

REPORT INFORMATION
  Report Type: 
  Country: None (occurrence: None)
  Receive Date: 20040830
  Receipt Date: 20040527
  Transmission Date: 20050211
  Serious: Yes (Other)
  Sender: FDA-Public Use
  Company Number: US-BRISTOL-MYERS SQUIBB COMPANY-12599668

PATIENT
  Age: 74 Year
  Sex: Male

DRUGS (12)
  1. ERBITUX [Suspect]
     Indication: COLON CANCER METASTATIC
     Dosage: 250MG/M2=400MG,3RD DOSE GIVEN ON 25-MAY-2004,THERAPY HELD, THEN STOPPED 21-JUL-2004
     Route: 042
     Dates: start: 20040501, end: 20040501
  2. IRINOTECAN [Concomitant]
     Dosage: STARTED ON 05-MAY-2004, 3RD DOSE ON 25-MAY-2004
     Dates: start: 20040501, end: 20040501
  3. APAP TAB [Concomitant]
     Indication: PREMEDICATION
     Dates: start: 20040501, end: 20040501
  4. DIPHENHYDRAMINE HCL [Concomitant]
     Indication: PREMEDICATION
     Dates: start: 20040501, end: 20040501
  5. GRANISETRON [Concomitant]
     Indication: PREMEDICATION
     Dates: start: 20040501, end: 20040501
  6. PRILOSEC [Concomitant]
  7. LESCOL [Concomitant]
  8. LOPRESSOR [Concomitant]
  9. ASPIRIN [Concomitant]
  10. VITAMIN E [Concomitant]
  11. ATIVAN [Concomitant]
  12. LOMOTIL [Concomitant]

REACTIONS (2)
  - PYREXIA [None]
  - RASH MORBILLIFORM [None]
